FAERS Safety Report 22233155 (Version 1)
Quarter: 2023Q2

REPORT INFORMATION
  Report Type: Spontaneous
  Country: US (occurrence: None)
  Receive Date: 20230420
  Receipt Date: 20230420
  Transmission Date: 20230722
  Serious: No
  Sender: FDA-Public Use
  Company Number: US-ROCHE-3064484

PATIENT
  Sex: Female

DRUGS (1)
  1. ESBRIET [Suspect]
     Active Substance: PIRFENIDONE
     Indication: Interstitial lung disease
     Dosage: TAKE 1 CAPSULE 3 TIMES DAILY X1 WEEK, THEN 2 CAPS 3 TIMES DAILY X1 WEEK, THEN 3 CAPS 3 TIMES DAILY W
     Route: 048

REACTIONS (10)
  - Dyspnoea [Unknown]
  - Productive cough [Unknown]
  - Wheezing [Unknown]
  - Feeling abnormal [Unknown]
  - Initial insomnia [Unknown]
  - Fatigue [Unknown]
  - Decreased appetite [Unknown]
  - Weight decreased [Unknown]
  - Disturbance in attention [Unknown]
  - General physical health deterioration [Unknown]
